FAERS Safety Report 7010657-7 (Version None)
Quarter: 2010Q3

REPORT INFORMATION
  Report Type: 
  Country: None (occurrence: None)
  Receive Date: 20100923
  Receipt Date: 20100915
  Transmission Date: 20110219
  Serious: Yes (Hospitalization, Other)
  Sender: FDA-Public Use
  Company Number: US-AMGEN-QUU435439

PATIENT
  Sex: Female
  Weight: 77.6 kg

DRUGS (2)
  1. ENBREL [Suspect]
     Indication: RHEUMATOID ARTHRITIS
     Route: 058
     Dates: start: 20000301, end: 20100818
  2. METHOTREXATE [Concomitant]
     Route: 048

REACTIONS (5)
  - HERPES ZOSTER [None]
  - NEPHROLITHIASIS [None]
  - PAIN OF SKIN [None]
  - PRURITUS [None]
  - URINARY TRACT INFECTION [None]
